FAERS Safety Report 15147818 (Version 2)
Quarter: 2018Q3

REPORT INFORMATION
  Report Type: Spontaneous
  Country: US (occurrence: US)
  Receive Date: 20180716
  Receipt Date: 20180723
  Transmission Date: 20181010
  Serious: Yes (Hospitalization, Other)
  Sender: FDA-Public Use
  Company Number: US-BRISTOL-MYERS SQUIBB COMPANY-BMS-2018-066055

PATIENT
  Sex: Male

DRUGS (2)
  1. PLAVIX [Suspect]
     Active Substance: CLOPIDOGREL BISULFATE
     Indication: THROMBOSIS
     Dosage: 75 MG, DAILY
     Route: 048
  2. ELIQUIS [Suspect]
     Active Substance: APIXABAN
     Indication: EMBOLISM VENOUS
     Dosage: 5 MG, BID
     Route: 048

REACTIONS (11)
  - Arthralgia [Recovered/Resolved]
  - Fatigue [Unknown]
  - Myalgia [Recovered/Resolved]
  - Asthenia [Unknown]
  - Urticaria [Recovered/Resolved]
  - Muscle atrophy [Unknown]
  - Pruritus [Recovered/Resolved]
  - Vomiting [Unknown]
  - Peripheral swelling [Recovering/Resolving]
  - Diverticulitis [Unknown]
  - Skin discolouration [Recovering/Resolving]
